FAERS Safety Report 12040582 (Version 1)
Quarter: 2016Q1

REPORT INFORMATION
  Report Type: Report from Study
  Country: US (occurrence: US)
  Receive Date: 20160208
  Receipt Date: 20160208
  Transmission Date: 20160526
  Serious: Yes (Hospitalization, Other)
  Sender: FDA-Public Use
  Company Number: US-ABBVIE-15P-163-1341594-00

PATIENT
  Age: 45 Year
  Sex: Female
  Weight: 76.73 kg

DRUGS (2)
  1. HUMIRA [Suspect]
     Active Substance: ADALIMUMAB
     Route: 058
  2. HUMIRA [Suspect]
     Active Substance: ADALIMUMAB
     Indication: CROHN^S DISEASE
     Route: 058
     Dates: start: 2005, end: 2012

REACTIONS (10)
  - Staphylococcal infection [Recovered/Resolved]
  - Joint warmth [Recovered/Resolved]
  - Ligament sprain [Recovered/Resolved]
  - Erythema [Recovered/Resolved]
  - Abscess limb [Recovered/Resolved]
  - Joint swelling [Recovered/Resolved]
  - Skin discolouration [Recovered/Resolved]
  - Pyrexia [Recovered/Resolved]
  - Hyperhidrosis [Recovered/Resolved]
  - Arthralgia [Recovered/Resolved]

NARRATIVE: CASE EVENT DATE: 201210
